FAERS Safety Report 7183795-6 (Version None)
Quarter: 2010Q4

REPORT INFORMATION
  Report Type: 
  Country: None (occurrence: None)
  Receive Date: 20101220
  Receipt Date: 20101220
  Transmission Date: 20110411
  Serious: Yes (Hospitalization)
  Sender: FDA-Public Use
  Company Number: None

PATIENT
  Sex: Male
  Weight: 158.2 kg

DRUGS (6)
  1. VINCRISTINE SULFATE [Suspect]
     Dosage: 12 MG
     Dates: end: 20100119
  2. PREDNISONE [Suspect]
     Dosage: 7560 MG
     Dates: end: 20100125
  3. CYTARABINE [Suspect]
     Dosage: 70 MG
     Dates: end: 20091204
  4. DAUNORUBICIN [Suspect]
     Dosage: 362 MG
     Dates: end: 20100111
  5. METHOTREXATE [Suspect]
     Dosage: 30 MG
     Dates: end: 20100104
  6. PEG-L-ASPARAGINASE (PEGASPARGASE, ONCOSPAR) [Suspect]
     Dosage: 14400 IU
     Dates: end: 20100114

REACTIONS (8)
  - ACTIVATED PARTIAL THROMBOPLASTIN TIME PROLONGED [None]
  - BACK PAIN [None]
  - HYPERBILIRUBINAEMIA [None]
  - HYPERGLYCAEMIA [None]
  - HYPOALBUMINAEMIA [None]
  - HYPOCALCAEMIA [None]
  - HYPONATRAEMIA [None]
  - PAIN IN EXTREMITY [None]
